FAERS Safety Report 13861133 (Version 1)
Quarter: 2017Q3

REPORT INFORMATION
  Report Type: Spontaneous
  Country: US (occurrence: US)
  Receive Date: 20170811
  Receipt Date: 20170811
  Transmission Date: 20171127
  Serious: No
  Sender: FDA-Public Use
  Company Number: GXBR2017US002021

PATIENT
  Sex: Female
  Weight: 47.17 kg

DRUGS (1)
  1. HYDROCORTISONE. [Suspect]
     Active Substance: HYDROCORTISONE
     Indication: PRODUCT USED FOR UNKNOWN INDICATION
     Dosage: 30 G, UNK
     Route: 065

REACTIONS (4)
  - Rash vesicular [Unknown]
  - Rash pruritic [Unknown]
  - Hypersensitivity [Unknown]
  - Drug ineffective [Unknown]
